FAERS Safety Report 11653653 (Version 3)
Quarter: 2015Q4

REPORT INFORMATION
  Report Type: Spontaneous
  Country: BE (occurrence: BE)
  Receive Date: 20151022
  Receipt Date: 20151027
  Transmission Date: 20160304
  Serious: Yes (Other)
  Sender: FDA-Public Use
  Company Number: PHHY2015BE134871

PATIENT
  Age: 30 Year
  Sex: Female
  Weight: 52 kg

DRUGS (5)
  1. GLIBENCLAMIDE [Suspect]
     Active Substance: GLYBURIDE
     Indication: NEONATAL DIABETES MELLITUS
     Dosage: 85 MG, QD
     Route: 065
  2. NIFEDIPINE. [Concomitant]
     Active Substance: NIFEDIPINE
     Indication: PRODUCT USED FOR UNKNOWN INDICATION
     Route: 065
  3. BETAMETHASONE. [Concomitant]
     Active Substance: BETAMETHASONE
     Indication: PRODUCT USED FOR UNKNOWN INDICATION
     Route: 065
  4. ATOSIBAN [Concomitant]
     Active Substance: ATOSIBAN
     Indication: PRODUCT USED FOR UNKNOWN INDICATION
     Route: 065
  5. GLIBENCLAMIDE [Suspect]
     Active Substance: GLYBURIDE
     Dosage: 90 UNK, UNK
     Route: 065

REACTIONS (3)
  - Drug level increased [Recovered/Resolved]
  - Premature labour [Unknown]
  - Maternal exposure during pregnancy [Unknown]
